FAERS Safety Report 10066858 (Version 1)
Quarter: 2014Q2

REPORT INFORMATION
  Report Type: Spontaneous
  Country: IT (occurrence: IT)
  Receive Date: 20140408
  Receipt Date: 20140408
  Transmission Date: 20141212
  Serious: Yes (Hospitalization)
  Sender: FDA-Public Use
  Company Number: IT-MYLANLABS-2014S1007679

PATIENT
  Age: 75 Year
  Sex: Male

DRUGS (1)
  1. METFORMIN HYDROCHLORIDE [Suspect]
     Indication: TYPE 2 DIABETES MELLITUS
     Dosage: 1 G DAILY
     Route: 048
     Dates: start: 20081030, end: 20131030

REACTIONS (3)
  - Anuria [Recovering/Resolving]
  - Metabolic acidosis [Recovering/Resolving]
  - Renal failure acute [Recovering/Resolving]
